FAERS Safety Report 6074783-1 (Version None)
Quarter: 2009Q1

REPORT INFORMATION
  Report Type: 
  Country: None (occurrence: None)
  Receive Date: 20090209
  Receipt Date: 20090129
  Transmission Date: 20090719
  Serious: Yes (Other)
  Sender: FDA-Public Use
  Company Number: KV200900144

PATIENT
  Age: 49 Year
  Sex: Female
  Weight: 74.8 kg

DRUGS (3)
  1. MORPHINE SULFATE [Suspect]
     Indication: BACK PAIN
     Dosage: 15 MG, 1 TAB Q 3 HRS PRN, ORAL
     Route: 048
     Dates: start: 20080810, end: 20080901
  2. MORPHINE SULFATE [Suspect]
     Indication: PROCEDURAL PAIN
     Dosage: 15 MG, 1 TAB Q 3 HRS PRN, ORAL
     Route: 048
     Dates: start: 20080810, end: 20080901
  3. PROZAC [Concomitant]

REACTIONS (15)
  - ACTIVITIES OF DAILY LIVING IMPAIRED [None]
  - ADNEXA UTERI PAIN [None]
  - ASTHENIA [None]
  - DEPRESSION [None]
  - FLUSHING [None]
  - MENSTRUATION IRREGULAR [None]
  - MUSCLE SPASMS [None]
  - MUSCULOSKELETAL DISCOMFORT [None]
  - NAUSEA [None]
  - PANIC ATTACK [None]
  - PRODUCT QUALITY ISSUE [None]
  - RHINORRHOEA [None]
  - SUICIDAL IDEATION [None]
  - VISION BLURRED [None]
  - VOMITING [None]
